FAERS Safety Report 6604323-7 (Version None)
Quarter: 2010Q1

REPORT INFORMATION
  Report Type: 
  Country: None (occurrence: None)
  Receive Date: 20100226
  Receipt Date: 20091002
  Transmission Date: 20100710
  Serious: Yes (Other)
  Sender: FDA-Public Use
  Company Number: A0803104A

PATIENT
  Age: 60 Year
  Sex: Female

DRUGS (4)
  1. LAMICTAL CD [Suspect]
     Dosage: 100MG TWICE PER DAY
     Route: 048
     Dates: start: 20090111
  2. BUSPAR [Concomitant]
  3. KLONOPIN [Concomitant]
  4. EFFEXOR XR [Concomitant]

REACTIONS (1)
  - SUICIDAL IDEATION [None]
